FAERS Safety Report 11422091 (Version 1)
Quarter: 2015Q3

REPORT INFORMATION
  Report Type: Report from Study
  Country: US (occurrence: None)
  Receive Date: 20150825
  Receipt Date: 20150825
  Transmission Date: 20151125
  Serious: Yes (Hospitalization)
  Sender: FDA-Public Use
  Company Number: KAD201508-002641

PATIENT
  Sex: Female

DRUGS (2)
  1. RIBAVIRIN (RIBAVIRIN) [Suspect]
     Active Substance: RIBAVIRIN
     Indication: HEPATITIS C
     Route: 048
  2. VIEKIRA PAK [Suspect]
     Active Substance: DASABUVIR\OMBITASVIR\PARITAPREVIR\RITONAVIR
     Indication: HEPATITIS C
     Dosage: 2 PINK IN AM AND 1 BEIGE TWICE DAILY
     Route: 048
     Dates: start: 201506, end: 20150731

REACTIONS (15)
  - Pain [None]
  - Dyspnoea [None]
  - Palpitations [None]
  - Mood altered [None]
  - Insomnia [None]
  - Blister [None]
  - Nausea [None]
  - Fatigue [None]
  - Asthenia [None]
  - Diarrhoea [None]
  - Hyperhidrosis [None]
  - Depression [None]
  - Pruritus [None]
  - Rash [None]
  - Wound haemorrhage [None]
